FAERS Safety Report 18897855 (Version 2)
Quarter: 2021Q1

REPORT INFORMATION
  Report Type: Spontaneous
  Country: US (occurrence: US)
  Receive Date: 20210216
  Receipt Date: 20210223
  Transmission Date: 20210420
  Serious: No
  Sender: FDA-Public Use
  Company Number: US-TEVA-2021-US-1872209

PATIENT
  Age: 28 Year
  Sex: Male
  Weight: 149.69 kg

DRUGS (3)
  1. AUSTEDO [Suspect]
     Active Substance: DEUTETRABENAZINE
     Indication: TOURETTE^S DISORDER
     Dosage: 48 MILLIGRAM DAILY;
     Route: 065
     Dates: start: 201901, end: 20200115
  2. CYMBALTA [Concomitant]
     Active Substance: DULOXETINE HYDROCHLORIDE
     Dosage: 120 MILLIGRAM DAILY;
  3. CELEBREX [Concomitant]
     Active Substance: CELECOXIB
     Dosage: 400 MILLIGRAM DAILY;

REACTIONS (4)
  - General physical health deterioration [Unknown]
  - Off label use [Unknown]
  - Condition aggravated [Unknown]
  - Insurance issue [Unknown]
